FAERS Safety Report 18338218 (Version 1)
Quarter: 2020Q4

REPORT INFORMATION
  Report Type: Spontaneous
  Country: US (occurrence: US)
  Receive Date: 20201001
  Receipt Date: 20201001
  Transmission Date: 20210113
  Serious: Yes (Hospitalization)
  Sender: FDA-Public Use
  Company Number: None

PATIENT
  Age: 42 Year
  Sex: Male

DRUGS (8)
  1. HUMIRA [Suspect]
     Active Substance: ADALIMUMAB
     Indication: CROHN^S DISEASE
     Dosage: OTHER FREQUENCY:EVERY TWO WEEKS;?
     Route: 058
     Dates: start: 20200403
  2. APAP/CODEINE [Concomitant]
     Active Substance: ACETAMINOPHEN\CODEINE PHOSPHATE
  3. AZATHIOPRINE. [Concomitant]
     Active Substance: AZATHIOPRINE
  4. CYCLOBENZAPR [Concomitant]
     Active Substance: CYCLOBENZAPRINE
  5. FUROSEMIDE. [Concomitant]
     Active Substance: FUROSEMIDE
  6. TIZANIDINE. [Concomitant]
     Active Substance: TIZANIDINE
  7. PROMETHAZINE [Concomitant]
     Active Substance: PROMETHAZINE HYDROCHLORIDE
  8. PREDISONE [Concomitant]
     Active Substance: PREDNISONE

REACTIONS (1)
  - Crohn^s disease [None]
